FAERS Safety Report 5476431-8 (Version None)
Quarter: 2007Q4

REPORT INFORMATION
  Report Type: 
  Country: None (occurrence: None)
  Receive Date: 20071003
  Receipt Date: 20070921
  Transmission Date: 20080405
  Serious: Yes (Other)
  Sender: FDA-Public Use
  Company Number: DE-PFIZER INC-2007081065

PATIENT
  Age: 45 Year
  Sex: Female

DRUGS (1)
  1. CHAMPIX [Suspect]
     Indication: EX-SMOKER
     Route: 048
     Dates: start: 20070101, end: 20070901

REACTIONS (3)
  - CARDIOVASCULAR DISORDER [None]
  - DIZZINESS [None]
  - HYPOTENSION [None]
